FAERS Safety Report 18886257 (Version 1)
Quarter: 2021Q1

REPORT INFORMATION
  Report Type: Spontaneous
  Country: US (occurrence: US)
  Receive Date: 20210212
  Receipt Date: 20210212
  Transmission Date: 20210420
  Serious: No
  Sender: FDA-Public Use
  Company Number: US-SA-2021SA041754

PATIENT
  Age: 71 Year
  Sex: Male
  Weight: 93.9 kg

DRUGS (11)
  1. GOCOVRI [Suspect]
     Active Substance: AMANTADINE
     Indication: DYSKINESIA
     Dosage: 137 MG, HS
     Route: 048
     Dates: start: 202010, end: 202010
  2. GABAPENTIN. [Concomitant]
     Active Substance: GABAPENTIN
     Dosage: 100M
     Dates: start: 202010
  3. XARELTO [Concomitant]
     Active Substance: RIVAROXABAN
     Dosage: 20 MG
  4. CARBIDOPA LEVODOPA [Concomitant]
     Active Substance: CARBIDOPA\LEVODOPA
     Dosage: 25/100
  5. LISINOPRIL. [Concomitant]
     Active Substance: LISINOPRIL
     Dosage: 20 MG
  6. CARBIDOPA LEVODOPA [Concomitant]
     Active Substance: CARBIDOPA\LEVODOPA
     Dosage: 50/200
  7. ROSUVASTATIN. [Concomitant]
     Active Substance: ROSUVASTATIN
     Dosage: 40 MG
  8. MULTIVITAMINS [VITAMINS NOS] [Concomitant]
     Active Substance: VITAMINS
     Dosage: UNK
  9. FLOMAX [Suspect]
     Active Substance: TAMSULOSIN HYDROCHLORIDE
     Indication: BENIGN PROSTATIC HYPERPLASIA
     Dosage: UNK
     Route: 065
     Dates: start: 202012
  10. GOCOVRI [Suspect]
     Active Substance: AMANTADINE
     Dosage: 274 MG, HS
     Route: 048
     Dates: start: 202010
  11. GOCOVRI [Suspect]
     Active Substance: AMANTADINE
     Dosage: 137 UNK
     Route: 048

REACTIONS (2)
  - Orthostatic hypotension [Unknown]
  - Peripheral swelling [Unknown]
